FAERS Safety Report 18271369 (Version 2)
Quarter: 2020Q3

REPORT INFORMATION
  Report Type: Report from Study
  Country: JP (occurrence: JP)
  Receive Date: 20200915
  Receipt Date: 20200918
  Transmission Date: 20201103
  Serious: Yes (Hospitalization)
  Sender: FDA-Public Use
  Company Number: JP-ASTRAZENECA-2020SF17430

PATIENT
  Age: 26702 Day
  Sex: Male

DRUGS (34)
  1. CARBAZOCHROME SULFONATE NA TABLETS [Concomitant]
     Indication: PROPHYLAXIS
     Route: 048
     Dates: start: 20200821, end: 20200825
  2. MAGNESIUM OXIDE TABLETS [Concomitant]
     Indication: CONSTIPATION
     Dosage: 330.0MG AS REQUIRED
     Route: 048
     Dates: start: 20200825
  3. URSODEOXYCHOLIC ACID [Concomitant]
     Active Substance: URSODIOL
     Indication: HEPATIC ENZYME INCREASED
     Route: 048
     Dates: start: 20200904
  4. ALOXI [Concomitant]
     Active Substance: PALONOSETRON HYDROCHLORIDE
     Indication: CHEMOTHERAPY SIDE EFFECT PROPHYLAXIS
     Dosage: 750.0UG ONCE/SINGLE ADMINISTRATION
     Route: 042
     Dates: start: 20200908, end: 20200908
  5. DEXART [Concomitant]
     Active Substance: DEXAMETHASONE SODIUM PHOSPHATE
     Indication: CHEMOTHERAPY SIDE EFFECT PROPHYLAXIS
     Dosage: 6.6MG ONCE/SINGLE ADMINISTRATION
     Route: 042
     Dates: start: 20200908, end: 20200908
  6. LASIX [Concomitant]
     Active Substance: FUROSEMIDE
     Indication: OEDEMA
     Route: 042
     Dates: start: 20200909
  7. BFLUID INJECTION [Concomitant]
     Active Substance: AMINO ACIDS\DEXTROSE\ELECTROLYTES NOS\VITAMINS
     Indication: NUTRITIONAL SUPPLEMENTATION
     Route: 042
     Dates: start: 20200910, end: 20200910
  8. POSTERISAN FORTE [Concomitant]
     Active Substance: LIDOCAINE
     Indication: HAEMORRHOIDS
     Dosage: 1.00 OTHER APPLICATION PRN
     Route: 061
     Dates: start: 20200825
  9. OMEPRAZOLE FOR INJECTION [Concomitant]
     Active Substance: OMEPRAZOLE
     Indication: PROPHYLAXIS
     Route: 042
     Dates: start: 20200904
  10. ADONA INJECTION [Concomitant]
     Indication: HAEMATURIA
     Route: 042
     Dates: start: 20200904, end: 20200905
  11. METOCLOPRAMIDE INJECTION [Concomitant]
     Active Substance: METOCLOPRAMIDE
     Indication: NAUSEA
     Dosage: 10.0MG AS REQUIRED
     Route: 042
     Dates: start: 20200906
  12. BFLUID INJECTION [Concomitant]
     Active Substance: AMINO ACIDS\DEXTROSE\ELECTROLYTES NOS\VITAMINS
     Indication: NUTRITIONAL SUPPLEMENTATION
     Route: 042
     Dates: start: 20200909, end: 20200909
  13. BFLUID INJECTION [Concomitant]
     Active Substance: AMINO ACIDS\DEXTROSE\ELECTROLYTES NOS\VITAMINS
     Indication: NUTRITIONAL SUPPLEMENTATION
     Route: 042
     Dates: start: 20200909, end: 20200909
  14. PHYSIO 140 [Concomitant]
     Active Substance: CALCIUM GLUCONATE\DEXTROSE\MAGNESIUM CHLORIDE\POTASSIUM CHLORIDE\SODIUM ACETATE\SODIUM CHLORIDE\TRISODIUM CITRATE DIHYDRATE
     Indication: PROPHYLAXIS
     Dosage: 500.0ML AS REQUIRED
     Route: 042
     Dates: start: 20200911
  15. LINZESS TABLETS [Concomitant]
     Indication: CONSTIPATION
     Dosage: 250.0UG/INHAL AS REQUIRED
     Route: 048
     Dates: start: 20200911
  16. MEROPENEM. [Concomitant]
     Active Substance: MEROPENEM
     Indication: BACTERAEMIA
     Route: 042
     Dates: start: 20200915
  17. BFLUID INJECTION [Concomitant]
     Active Substance: AMINO ACIDS\DEXTROSE\ELECTROLYTES NOS\VITAMINS
     Indication: NUTRITIONAL SUPPLEMENTATION
     Route: 042
     Dates: start: 20200909, end: 20200909
  18. BFLUID INJECTION [Concomitant]
     Active Substance: AMINO ACIDS\DEXTROSE\ELECTROLYTES NOS\VITAMINS
     Indication: NUTRITIONAL SUPPLEMENTATION
     Route: 042
     Dates: start: 20200912
  19. BFLUID INJECTION [Concomitant]
     Active Substance: AMINO ACIDS\DEXTROSE\ELECTROLYTES NOS\VITAMINS
     Indication: NUTRITIONAL SUPPLEMENTATION
     Route: 042
     Dates: start: 20200912
  20. NARURAPID TABLETS [Concomitant]
     Indication: CANCER PAIN
     Dosage: 1.0MG AS REQUIRED
     Route: 048
     Dates: start: 20200912
  21. DURVALUMAB. [Suspect]
     Active Substance: DURVALUMAB
     Indication: TRANSITIONAL CELL CARCINOMA
     Route: 042
     Dates: start: 20200908, end: 20200908
  22. GEMCITABINE. [Suspect]
     Active Substance: GEMCITABINE
     Indication: TRANSITIONAL CELL CARCINOMA
     Route: 042
     Dates: start: 20200908, end: 20200908
  23. ADONA [Concomitant]
     Indication: HAEMATURIA
     Route: 048
     Dates: start: 20200825, end: 20200827
  24. GLYCYRON TABLETS [Concomitant]
     Indication: HEPATIC ENZYME INCREASED
     Route: 048
     Dates: start: 20200904
  25. ADONA INJECTION [Concomitant]
     Indication: HAEMATURIA
     Route: 042
     Dates: start: 20200914
  26. LASIX [Concomitant]
     Active Substance: FUROSEMIDE
     Indication: OEDEMA
     Route: 042
     Dates: start: 20200911
  27. 10% SODIUM CHLORIDE INJECTION [Concomitant]
     Indication: ELECTROLYTE IMBALANCE
     Route: 042
     Dates: start: 20200912
  28. BFLUID INJECTION [Concomitant]
     Active Substance: AMINO ACIDS\DEXTROSE\ELECTROLYTES NOS\VITAMINS
     Indication: NUTRITIONAL SUPPLEMENTATION
     Route: 042
     Dates: start: 20200910, end: 20200910
  29. BFLUID INJECTION [Concomitant]
     Active Substance: AMINO ACIDS\DEXTROSE\ELECTROLYTES NOS\VITAMINS
     Indication: NUTRITIONAL SUPPLEMENTATION
     Route: 042
     Dates: start: 20200910, end: 20200910
  30. CARBOPLATIN. [Suspect]
     Active Substance: CARBOPLATIN
     Indication: TRANSITIONAL CELL CARCINOMA
     Route: 042
     Dates: start: 20200908, end: 20200908
  31. LASIX [Concomitant]
     Active Substance: FUROSEMIDE
     Indication: OEDEMA
     Route: 042
     Dates: start: 20200909
  32. LASIX [Concomitant]
     Active Substance: FUROSEMIDE
     Indication: OEDEMA
     Route: 042
     Dates: start: 20200911
  33. CEFMETAZOLE [Concomitant]
     Active Substance: CEFMETAZOLE
     Indication: URINARY TRACT INFECTION
     Route: 042
     Dates: start: 20200911
  34. BFLUID INJECTION [Concomitant]
     Active Substance: AMINO ACIDS\DEXTROSE\ELECTROLYTES NOS\VITAMINS
     Indication: NUTRITIONAL SUPPLEMENTATION
     Route: 042
     Dates: start: 20200912

REACTIONS (2)
  - Disseminated intravascular coagulation [Not Recovered/Not Resolved]
  - Bacteraemia [Not Recovered/Not Resolved]

NARRATIVE: CASE EVENT DATE: 20200911
